FAERS Safety Report 10576917 (Version 1)
Quarter: 2014Q4

REPORT INFORMATION
  Report Type: Spontaneous
  Country: FI (occurrence: FI)
  Receive Date: 20141111
  Receipt Date: 20141111
  Transmission Date: 20150529
  Serious: Yes (Other)
  Sender: FDA-Public Use
  Company Number: FI-SHIRE-FI201407705

PATIENT
  Age: 53 Year
  Sex: Male

DRUGS (4)
  1. HYDREA [Concomitant]
     Active Substance: HYDROXYUREA
     Indication: POLYCYTHAEMIA VERA
     Dosage: UNK, UNKNOWN
     Route: 065
  2. XAGRID [Suspect]
     Active Substance: ANAGRELIDE HYDROCHLORIDE
     Indication: POLYCYTHAEMIA VERA
     Dosage: UNK, UNKNOWN
     Route: 048
     Dates: start: 201101
  3. XAGRID [Suspect]
     Active Substance: ANAGRELIDE HYDROCHLORIDE
     Dosage: UNK, UNKNOWN
     Route: 048
     Dates: end: 20140911
  4. HYDREA [Concomitant]
     Active Substance: HYDROXYUREA
     Dosage: UNK, UNKNOWN
     Route: 065
     Dates: start: 1991

REACTIONS (11)
  - Melaena [Not Recovered/Not Resolved]
  - Oedema peripheral [Not Recovered/Not Resolved]
  - Rectal adenocarcinoma [Not Recovered/Not Resolved]
  - Fatigue [Not Recovered/Not Resolved]
  - Arthralgia [Recovered/Resolved]
  - Off label use [Recovered/Resolved]
  - Joint swelling [Not Recovered/Not Resolved]
  - Muscular weakness [Recovered/Resolved]
  - Diarrhoea [Not Recovered/Not Resolved]
  - Erectile dysfunction [Not Recovered/Not Resolved]
  - Epistaxis [Not Recovered/Not Resolved]

NARRATIVE: CASE EVENT DATE: 201101
